FAERS Safety Report 11170967 (Version 1)
Quarter: 2015Q2

REPORT INFORMATION
  Report Type: Spontaneous
  Country: US (occurrence: None)
  Receive Date: 20150515
  Receipt Date: 20150515
  Transmission Date: 20150821
  Serious: Yes (Other)
  Sender: FDA-Public Use
  Company Number: 2014014117

PATIENT
  Age: 23 Year
  Weight: 83.9 kg

DRUGS (2)
  1. PREDNISONE. [Concomitant]
     Active Substance: PREDNISONE
  2. CIMZIA [Suspect]
     Active Substance: CERTOLIZUMAB PEGOL
     Indication: CROHN^S DISEASE

REACTIONS (2)
  - Weight decreased [None]
  - Crohn^s disease [None]
